FAERS Safety Report 15104700 (Version 1)
Quarter: 2018Q2

REPORT INFORMATION
  Report Type: Spontaneous
  Country: US (occurrence: US)
  Receive Date: 20180611
  Receipt Date: 20180611
  Transmission Date: 20180711
  Serious: Yes (Other)
  Sender: FDA-Public Use
  Company Number: None

PATIENT
  Age: 68 Year
  Sex: Male
  Weight: 120.75 kg

DRUGS (1)
  1. TRAMADOL. [Suspect]
     Active Substance: TRAMADOL
     Indication: PAIN
     Route: 048
     Dates: start: 20180525, end: 20180526

REACTIONS (10)
  - Postictal state [None]
  - Haemorrhage [None]
  - Dizziness [None]
  - Oxygen saturation decreased [None]
  - Feeling abnormal [None]
  - Speech disorder [None]
  - Loss of consciousness [None]
  - Blood pressure increased [None]
  - Anal incontinence [None]
  - Seizure [None]

NARRATIVE: CASE EVENT DATE: 20180525
